FAERS Safety Report 17405700 (Version 1)
Quarter: 2020Q1

REPORT INFORMATION
  Report Type: Spontaneous
  Country: GB (occurrence: GB)
  Receive Date: 20200212
  Receipt Date: 20200212
  Transmission Date: 20200409
  Serious: Yes (Life-Threatening, Hospitalization, Other)
  Sender: FDA-Public Use
  Company Number: GB-ALVOGEN-2020-ALVOGEN-107594

PATIENT
  Age: 60 Year
  Sex: Female

DRUGS (7)
  1. CLINDAMYCIN. [Suspect]
     Active Substance: CLINDAMYCIN
     Indication: CELLULITIS
  2. VANCOMYCIN [Suspect]
     Active Substance: VANCOMYCIN
     Indication: CELLULITIS
  3. RITONAVIR. [Concomitant]
     Active Substance: RITONAVIR
     Indication: HIV INFECTION
  4. LAMIVUDINE. [Concomitant]
     Active Substance: LAMIVUDINE
     Indication: HIV INFECTION
  5. CLINDAMYCIN. [Suspect]
     Active Substance: CLINDAMYCIN
     Indication: CELLULITIS
  6. MEROPENEM. [Suspect]
     Active Substance: MEROPENEM
     Indication: CELLULITIS
  7. DARUNAVIR [Concomitant]
     Active Substance: DARUNAVIR
     Indication: HIV INFECTION

REACTIONS (6)
  - Somnolence [Recovered/Resolved]
  - Hypotension [Recovered/Resolved]
  - Coagulopathy [Recovered/Resolved]
  - Hyperbilirubinaemia [Recovered/Resolved]
  - Hepatotoxicity [Recovered/Resolved]
  - Drug ineffective [Recovered/Resolved]
